FAERS Safety Report 13971792 (Version 1)
Quarter: 2017Q3

REPORT INFORMATION
  Report Type: Spontaneous
  Country: US (occurrence: US)
  Receive Date: 20170914
  Receipt Date: 20170914
  Transmission Date: 20171128
  Serious: Yes (Hospitalization)
  Sender: FDA-Public Use
  Company Number: None

PATIENT
  Age: 93 Year
  Sex: Male
  Weight: 92 kg

DRUGS (1)
  1. RUXOLITINIB [Suspect]
     Active Substance: RUXOLITINIB
     Indication: LEUKAEMIA
     Route: 048
     Dates: start: 20150311

REACTIONS (4)
  - Productive cough [None]
  - Pneumonia [None]
  - Upper respiratory tract infection [None]
  - Cardiac failure congestive [None]

NARRATIVE: CASE EVENT DATE: 20170904
